FAERS Safety Report 15799882 (Version 1)
Quarter: 2019Q1

REPORT INFORMATION
  Report Type: Spontaneous
  Country: US (occurrence: US)
  Receive Date: 20190108
  Receipt Date: 20190108
  Transmission Date: 20190417
  Serious: Yes (Other)
  Sender: FDA-Public Use
  Company Number: US-NEUROCRINE BIOSCIENCES INC.-2018NBI03675

PATIENT
  Sex: Male

DRUGS (4)
  1. INGREZZA [Suspect]
     Active Substance: VALBENAZINE
     Dates: start: 2018, end: 2018
  2. INGREZZA [Suspect]
     Active Substance: VALBENAZINE
     Dates: start: 2018
  3. INGREZZA [Suspect]
     Active Substance: VALBENAZINE
     Indication: AKATHISIA
     Dates: start: 20181120, end: 201811
  4. INGREZZA [Suspect]
     Active Substance: VALBENAZINE
     Dates: start: 201811, end: 2018

REACTIONS (6)
  - Paraesthesia [Not Recovered/Not Resolved]
  - Anger [Not Recovered/Not Resolved]
  - Drug ineffective for unapproved indication [None]
  - Suicidal ideation [Not Recovered/Not Resolved]
  - Self-injurious ideation [Not Recovered/Not Resolved]
  - Insomnia [Not Recovered/Not Resolved]

NARRATIVE: CASE EVENT DATE: 2018
